FAERS Safety Report 25749167 (Version 2)
Quarter: 2025Q3

REPORT INFORMATION
  Report Type: Spontaneous
  Country: EU (occurrence: EU)
  Receive Date: 20250902
  Receipt Date: 20250917
  Transmission Date: 20251021
  Serious: Yes (Hospitalization)
  Sender: SANOFI AVENTIS
  Company Number: EU-SANOFI-02619937

PATIENT
  Age: 40 Year
  Sex: Female
  Weight: 67 kg

DRUGS (6)
  1. ENOXAPARIN SODIUM [Suspect]
     Active Substance: ENOXAPARIN SODIUM
     Indication: Thrombosis
     Dosage: UNK UNK, QD
     Route: 065
  2. ENOXAPARIN SODIUM [Suspect]
     Active Substance: ENOXAPARIN SODIUM
     Indication: Hypercoagulation
  3. IRON [Concomitant]
     Active Substance: IRON
  4. VITAMINS WITH MINERALS CAPSULES (21) [Concomitant]
  5. MAGNESIUM [Concomitant]
     Active Substance: MAGNESIUM
  6. ASPIRIN [Concomitant]
     Active Substance: ASPIRIN
     Indication: Hypercoagulation

REACTIONS (5)
  - Dizziness [Recovered/Resolved]
  - White blood cell count increased [Recovered/Resolved]
  - Maternal exposure during pregnancy [Unknown]
  - Urinary tract infection [Unknown]
  - Food poisoning [Unknown]

NARRATIVE: CASE EVENT DATE: 20250823
